FAERS Safety Report 5878250-7 (Version None)
Quarter: 2008Q3

REPORT INFORMATION
  Report Type: 
  Country: None (occurrence: None)
  Receive Date: 20080911
  Receipt Date: 20080828
  Transmission Date: 20090109
  Serious: Yes (Hospitalization, Other)
  Sender: FDA-Public Use
  Company Number: US-ELI_LILLY_AND_COMPANY-US200808006301

PATIENT
  Age: 82 Year
  Sex: Female

DRUGS (2)
  1. FORTEO [Suspect]
     Dosage: UNK, UNK
     Dates: start: 20070801, end: 20080228
  2. FORTEO [Suspect]
     Dates: start: 20080407

REACTIONS (5)
  - GAIT DISTURBANCE [None]
  - HOSPITALISATION [None]
  - PARTIAL SEIZURES [None]
  - VIRAL INFECTION [None]
  - VITAMIN D DECREASED [None]
